FAERS Safety Report 17790828 (Version 1)
Quarter: 2020Q2

REPORT INFORMATION
  Report Type: Spontaneous
  Country: US (occurrence: US)
  Receive Date: 20200514
  Receipt Date: 20200514
  Transmission Date: 20200714
  Serious: No
  Sender: FDA-Public Use
  Company Number: None

PATIENT
  Age: 52 Year
  Sex: Female

DRUGS (1)
  1. ARANESP [Suspect]
     Active Substance: DARBEPOETIN ALFA
     Indication: ANAEMIA
     Dosage: OTHER FREQUENCY:OTHER;?
     Route: 058
     Dates: start: 201801

REACTIONS (2)
  - Transfusion [None]
  - Product dose omission [None]

NARRATIVE: CASE EVENT DATE: 20200504
